FAERS Safety Report 8113585-9 (Version None)
Quarter: 2012Q1

REPORT INFORMATION
  Report Type: 
  Country: None (occurrence: None)
  Receive Date: 20120131
  Receipt Date: 20120123
  Transmission Date: 20120608
  Serious: Yes (Other)
  Sender: FDA-Public Use
  Company Number: NL-GDP-11412275

PATIENT
  Sex: Female
  Weight: 73 kg

DRUGS (3)
  1. SERETIDE /01420901/ [Concomitant]
  2. METVIXIA [Suspect]
     Indication: BASAL CELL CARCINOMA
     Dosage: PATIENT TREATED FOR SEVERAL LESIONS (AKTINIC KERATOSIS AND BASAL CEL CARCINOMA) (TOPICAL)
     Route: 061
     Dates: start: 20101220, end: 20101220
  3. METVIXIA [Suspect]
     Indication: ACTINIC KERATOSIS
     Dosage: PATIENT TREATED FOR SEVERAL LESIONS (AKTINIC KERATOSIS AND BASAL CEL CARCINOMA) (TOPICAL)
     Route: 061
     Dates: start: 20101220, end: 20101220

REACTIONS (4)
  - HYPERTENSION [None]
  - JOINT SURGERY [None]
  - COLON CANCER [None]
  - DRUG HYPERSENSITIVITY [None]
